FAERS Safety Report 9801046 (Version 2)
Quarter: 2014Q2

REPORT INFORMATION
  Report Type: Report from Study
  Country: US (occurrence: US)
  Receive Date: 20140107
  Receipt Date: 20140407
  Transmission Date: 20141212
  Serious: Yes (Hospitalization, Other)
  Sender: FDA-Public Use
  Company Number: US-SA-2014SA000181

PATIENT
  Age: 64 Year
  Sex: Female

DRUGS (1)
  1. AUBAGIO [Suspect]
     Indication: MULTIPLE SCLEROSIS
     Route: 048
     Dates: start: 20130916, end: 20140201

REACTIONS (8)
  - International normalised ratio increased [Unknown]
  - Fall [Unknown]
  - Foot fracture [Unknown]
  - Gait disturbance [Unknown]
  - Epistaxis [Unknown]
  - Haematoma [Unknown]
  - Arthralgia [Unknown]
  - Alopecia [Unknown]
